FAERS Safety Report 8789010 (Version 2)
Quarter: 2012Q4

REPORT INFORMATION
  Report Type: 
  Country: TR (occurrence: TR)
  Receive Date: 20120916
  Receipt Date: 20121023
  Transmission Date: 20130627
  Serious: Yes (Death)
  Sender: FDA-Public Use
  Company Number: TR-009507513-1209TUR005121

PATIENT

DRUGS (2)
  1. TEMODAL [Suspect]
     Indication: GLIOBLASTOMA MULTIFORME
     Dosage: 75 mg/m2, qd
  2. TEMODAL [Suspect]
     Indication: ANAPLASTIC ASTROCYTOMA
     Dosage: 150-200 mg/m2, for 5 days every 28 days for at least 6 cycles

REACTIONS (2)
  - Pneumonia aspiration [Fatal]
  - Acute respiratory distress syndrome [Fatal]
